FAERS Safety Report 20049160 (Version 1)
Quarter: 2021Q4

REPORT INFORMATION
  Report Type: Report from Study
  Country: DE (occurrence: DE)
  Receive Date: 20211109
  Receipt Date: 20211109
  Transmission Date: 20220303
  Serious: Yes (Hospitalization)
  Sender: FDA-Public Use
  Company Number: DE-002147023-PHHY2017DE073524

PATIENT
  Age: 54 Year
  Sex: Male
  Weight: 102 kg

DRUGS (22)
  1. PREDNISOLONE [Suspect]
     Active Substance: PREDNISOLONE
     Indication: Autoimmune hepatitis
     Dosage: 2 MILLIGRAM, QD (2 MG, QD (1-0-0-0))
     Route: 065
  2. PREDNISOLONE [Suspect]
     Active Substance: PREDNISOLONE
     Dosage: 50 MILLIGRAM, QD (50 MG, QD)
     Route: 048
     Dates: start: 20161130, end: 20170209
  3. TAFINLAR [Suspect]
     Active Substance: DABRAFENIB MESYLATE
     Indication: Malignant melanoma
     Dosage: 300 MILLIGRAM, QD (150 MG, BID)
     Route: 048
     Dates: start: 20180216, end: 20210216
  4. TAFINLAR [Suspect]
     Active Substance: DABRAFENIB MESYLATE
     Dosage: 300 MILLIGRAM, QD (150 MG, BID)
     Route: 048
     Dates: start: 20180117, end: 20180215
  5. TAFINLAR [Suspect]
     Active Substance: DABRAFENIB MESYLATE
     Dosage: 300 MILLIGRAM, QD (150 MG, BID)
     Route: 048
     Dates: start: 20210217
  6. TAFINLAR [Suspect]
     Active Substance: DABRAFENIB MESYLATE
     Dosage: 300 MILLIGRAM, QD (150 MG, BID)
     Route: 048
     Dates: start: 20161207, end: 20180116
  7. TRAMETINIB [Suspect]
     Active Substance: TRAMETINIB
     Indication: Malignant melanoma
     Dosage: 1.5 MILLIGRAM, QD
     Route: 048
     Dates: start: 20210217
  8. TRAMETINIB [Suspect]
     Active Substance: TRAMETINIB
     Dosage: 2 MILLIGRAM, QD
     Route: 048
     Dates: start: 20180216, end: 20210216
  9. TRAMETINIB [Suspect]
     Active Substance: TRAMETINIB
     Dosage: 2 MILLIGRAM, QD
     Route: 048
     Dates: start: 20161207, end: 20180116
  10. TRAMETINIB [Suspect]
     Active Substance: TRAMETINIB
     Dosage: 1 MILLIGRAM, QD
     Route: 048
     Dates: start: 20180117, end: 20180215
  11. BUDESONIDE [Concomitant]
     Active Substance: BUDESONIDE
     Indication: Autoimmune hepatitis
     Dosage: 6 MILLIGRAM, QD (3 MG, BID)
     Route: 048
     Dates: start: 20161130, end: 20170209
  12. FUSIDIC ACID [Concomitant]
     Active Substance: FUSIDIC ACID
     Indication: Product used for unknown indication
     Dosage: UNK UNK, QD
     Route: 061
     Dates: start: 20161211, end: 20170125
  13. SINUPRET                           /00578801/ [Concomitant]
     Indication: Product used for unknown indication
     Dosage: 3 DOSAGE FORM, QD (1 DF, TID),START DATE: 31-MAR-2017
     Route: 048
     Dates: end: 20170410
  14. CODEINE [Concomitant]
     Active Substance: CODEINE
     Indication: Product used for unknown indication
     Dosage: 30 GTT DROPS, QD (30 DRP, QD), START DATE: 31-MAR-2017
     Route: 048
     Dates: end: 20170410
  15. CARMEN                             /00740901/ [Concomitant]
     Indication: Hypertension
     Dosage: 10 MILLIGRAM, QD (10 MG, QD)
     Route: 048
  16. AMOXICILLIN\CLAVULANATE POTASSIUM [Concomitant]
     Active Substance: AMOXICILLIN\CLAVULANATE POTASSIUM
     Indication: Product used for unknown indication
     Dosage: 875 MILLIGRAM, QD (875 MG, QD), START DATE: 06-MAR-2017
     Route: 048
     Dates: end: 20170611
  17. CALCIUM [Concomitant]
     Active Substance: CALCIUM
     Indication: Product used for unknown indication
     Dosage: 500 MILLIGRAM (500 MG, UNK)
     Route: 065
  18. METHYLPREDNISOLONE ACEPONATE [Concomitant]
     Active Substance: METHYLPREDNISOLONE ACEPONATE
     Indication: Product used for unknown indication
     Dosage: UNK UNK, QD
     Route: 061
     Dates: start: 20161211, end: 20170125
  19. NALOXONE HYDROCHLORIDE\TILIDINE HYDROCHLORIDE [Concomitant]
     Active Substance: NALOXONE HYDROCHLORIDE\TILIDINE HYDROCHLORIDE
     Indication: Malignant melanoma
     Dosage: 150 MILLIGRAM, QD (50 MG, TID)
     Route: 048
  20. METOPROLOL [Concomitant]
     Active Substance: METOPROLOL
     Indication: Hypertension
     Dosage: 95 MILLIGRAM, QD (95 MG, QD)
     Route: 048
  21. METAMIZOLE [Concomitant]
     Active Substance: METAMIZOLE
     Indication: Malignant melanoma
     Dosage: 120 GTT DROPS, QD (30 DRP, QID)
     Route: 048
  22. OMEPRAZOLE [Concomitant]
     Active Substance: OMEPRAZOLE
     Indication: Product used for unknown indication
     Dosage: 20 MILLIGRAM, QD, START DATE; 01-JUL-2017
     Route: 048

REACTIONS (12)
  - Palpitations [Unknown]
  - Dyspnoea [Unknown]
  - Angina pectoris [Unknown]
  - Nasopharyngitis [Recovered/Resolved]
  - Blood creatine phosphokinase increased [Not Recovered/Not Resolved]
  - Eczema [Recovered/Resolved]
  - Vertigo [Not Recovered/Not Resolved]
  - Arthralgia [Recovering/Resolving]
  - Mucosal dryness [Not Recovered/Not Resolved]
  - Rash maculo-papular [Recovered/Resolved]
  - Dyspepsia [Recovered/Resolved]
  - Pyrexia [Recovered/Resolved]

NARRATIVE: CASE EVENT DATE: 20161211
